FAERS Safety Report 24928337 (Version 1)
Quarter: 2025Q1

REPORT INFORMATION
  Report Type: Spontaneous
  Country: US (occurrence: None)
  Receive Date: 20250204
  Receipt Date: 20250204
  Transmission Date: 20250409
  Serious: No
  Sender: FDA-CTU
  Company Number: None

PATIENT
  Age: 66 Year
  Sex: Female
  Weight: 78.75 kg

DRUGS (1)
  1. BUSPIRONE HCL [Suspect]
     Active Substance: BUSPIRONE HYDROCHLORIDE
     Indication: Anxiety
     Dosage: 1 CAPSULE TEICE A DAY ORAL
     Route: 048
     Dates: start: 20250201, end: 20250202

REACTIONS (2)
  - Dyskinesia [None]
  - Paraesthesia oral [None]

NARRATIVE: CASE EVENT DATE: 20250202
